FAERS Safety Report 18630725 (Version 1)
Quarter: 2020Q4

REPORT INFORMATION
  Report Type: Spontaneous
  Country: CN (occurrence: CN)
  Receive Date: 20201217
  Receipt Date: 20201217
  Transmission Date: 20210114
  Serious: Yes (Other)
  Sender: FDA-Public Use
  Company Number: CN-ASTRAZENECA-2020SF66186

PATIENT
  Age: 731 Day
  Sex: Female

DRUGS (2)
  1. TERBUTALINE SULFATE. [Concomitant]
     Active Substance: TERBUTALINE SULFATE
     Indication: COUGH
     Dosage: 5.0 MG, 2 TIMES EVERY 2 DAYS
     Route: 055
     Dates: start: 20201125, end: 20201125
  2. BUDESONIDE. [Suspect]
     Active Substance: BUDESONIDE
     Indication: COUGH
     Route: 055
     Dates: start: 20201125, end: 20201125

REACTIONS (4)
  - Rash [Recovered/Resolved]
  - Nervousness [Recovered/Resolved]
  - Cough [Recovered/Resolved]
  - Flushing [Recovered/Resolved]

NARRATIVE: CASE EVENT DATE: 20201125
